FAERS Safety Report 6552819-9 (Version None)
Quarter: 2010Q1

REPORT INFORMATION
  Report Type: 
  Country: None (occurrence: None)
  Receive Date: 20100121
  Receipt Date: 20100105
  Transmission Date: 20100710
  Serious: Yes (Other)
  Sender: FDA-Public Use
  Company Number: 480037

PATIENT
  Age: 52 Year
  Sex: Male

DRUGS (4)
  1. PHENYTOIN [Suspect]
     Indication: EPILEPSY
     Dosage: 100 MG, 3 DAY,
     Dates: start: 20070810, end: 20070815
  2. (EPANUTIN /00017402/) [Suspect]
     Indication: EPILEPSY
     Dosage: 100 MG, 3 DAY, INTRAVENOUS
     Route: 042
     Dates: start: 20070810, end: 20070815
  3. (DALTEPARIN) [Concomitant]
  4. PANTOPRAZOLE [Concomitant]

REACTIONS (4)
  - BLOOD ALBUMIN DECREASED [None]
  - BLOOD UREA DECREASED [None]
  - CONVULSION [None]
  - VISUAL IMPAIRMENT [None]
